FAERS Safety Report 9456625 (Version 1)
Quarter: 2013Q3

REPORT INFORMATION
  Report Type: Report from Study
  Country: US (occurrence: US)
  Receive Date: 20130813
  Receipt Date: 20130813
  Transmission Date: 20140515
  Serious: Yes (Other)
  Sender: FDA-Public Use
  Company Number: US-US-EMD SERONO, INC.-7228732

PATIENT
  Sex: Female

DRUGS (2)
  1. REBIF [Suspect]
     Indication: MULTIPLE SCLEROSIS
     Route: 058
     Dates: start: 20041209, end: 20130131
  2. REBIF [Suspect]
     Route: 058
     Dates: start: 20130802

REACTIONS (3)
  - Cerebrovascular accident [Recovered/Resolved with Sequelae]
  - Diabetes mellitus [Not Recovered/Not Resolved]
  - Amnesia [Not Recovered/Not Resolved]
